FAERS Safety Report 15596884 (Version 2)
Quarter: 2018Q4

REPORT INFORMATION
  Report Type: Spontaneous
  Country: DE (occurrence: DE)
  Receive Date: 20181108
  Receipt Date: 20181116
  Transmission Date: 20190205
  Serious: Yes (Congenital Anomaly)
  Sender: FDA-Public Use
  Company Number: DE-TEVA-2018-DE-972281

PATIENT
  Age: 1 Day
  Sex: Male
  Weight: 3.2 kg

DRUGS (3)
  1. LAMOTRIGIN [Suspect]
     Active Substance: LAMOTRIGINE
     Indication: EPILEPSY
     Dosage: 350 [MG/D ]/ DOSAGE 250-350 MG/D, AS NEEDED FOR A STEADY SERUM LEVEL
     Route: 064
     Dates: start: 20170427, end: 20180212
  2. LEVETIRACETAM. [Suspect]
     Active Substance: LEVETIRACETAM
     Indication: EPILEPSY
     Dosage: 500 MILLIGRAM DAILY; 500 [MG/D ]
     Route: 064
     Dates: start: 20170427, end: 20180212
  3. FOLS?URE [Concomitant]
     Indication: PROPHYLAXIS OF NEURAL TUBE DEFECT
     Dosage: 5 MILLIGRAM DAILY; 5 [MG/D ]
     Route: 064
     Dates: start: 20170427, end: 20180212

REACTIONS (2)
  - Pulmonary valve stenosis congenital [Recovered/Resolved with Sequelae]
  - Foetal exposure during pregnancy [Unknown]

NARRATIVE: CASE EVENT DATE: 20180212
